FAERS Safety Report 16804568 (Version 2)
Quarter: 2019Q3

REPORT INFORMATION
  Report Type: Spontaneous
  Country: JP (occurrence: JP)
  Receive Date: 20190913
  Receipt Date: 20190919
  Transmission Date: 20191005
  Serious: Yes (Other)
  Sender: FDA-Public Use
  Company Number: JP-SA-2019SA251020

PATIENT
  Age: 63 Year
  Sex: Female

DRUGS (3)
  1. AFLIBERCEPT [Suspect]
     Active Substance: AFLIBERCEPT
     Indication: DIABETIC RETINAL OEDEMA
     Dosage: 2 MG
     Route: 031
  2. AFLIBERCEPT [Interacting]
     Active Substance: AFLIBERCEPT
     Indication: ANTIANGIOGENIC THERAPY
     Dosage: 6 DF, TOTAL, INJECTION
     Route: 031
  3. HEPARIN [Interacting]
     Active Substance: HEPARIN SODIUM
     Indication: THROMBOSIS PROPHYLAXIS
     Dosage: UNK

REACTIONS (7)
  - Vision blurred [Unknown]
  - Retinal disorder [Unknown]
  - Retinal ischaemia [Unknown]
  - Retinal artery occlusion [Unknown]
  - Drug interaction [Unknown]
  - Arteriosclerotic retinopathy [Unknown]
  - Hypoperfusion [Unknown]
